FAERS Safety Report 19282421 (Version 1)
Quarter: 2021Q2

REPORT INFORMATION
  Report Type: Spontaneous
  Country: US (occurrence: US)
  Receive Date: 20210521
  Receipt Date: 20210521
  Transmission Date: 20210717
  Serious: Yes (Hospitalization, Other)
  Sender: FDA-Public Use
  Company Number: US-GLENMARK PHARMACEUTICALS-2021GMK054018

PATIENT
  Age: 74 Year
  Sex: Female

DRUGS (2)
  1. LIDOCAINE. [Suspect]
     Active Substance: LIDOCAINE
     Indication: LOCAL ANAESTHESIA
     Dosage: 6 MILLILITER, TOTAL (LIDOCAINE 1% WITH EPINEPHRINE 1:100,000), FORMULATION: INJECTION
     Route: 065
  2. EPINEPHRINE. [Concomitant]
     Active Substance: EPINEPHRINE
     Indication: LOCAL ANAESTHESIA
     Dosage: 6 MILLILITER, TOTAL (LIDOCAINE 1% WITH EPINEPHRINE 1: 100,000)
     Route: 065

REACTIONS (1)
  - Facial paralysis [Recovered/Resolved]
